FAERS Safety Report 9815285 (Version 3)
Quarter: 2014Q1

REPORT INFORMATION
  Report Type: Spontaneous
  Country: DE (occurrence: DE)
  Receive Date: 20140114
  Receipt Date: 20140224
  Transmission Date: 20141002
  Serious: Yes (Other)
  Sender: FDA-Public Use
  Company Number: DE-JNJFOC-20140104368

PATIENT
  Age: 48 Year
  Sex: Female

DRUGS (3)
  1. XEPLION [Suspect]
     Indication: SCHIZOPHRENIA, PARANOID TYPE
     Route: 030
     Dates: start: 20131111
  2. PREDNISOLON [Concomitant]
     Indication: RHEUMATIC DISORDER
     Route: 048
     Dates: start: 201312
  3. VOMACUR [Concomitant]
     Indication: VERTIGO
     Route: 065
     Dates: start: 201312

REACTIONS (2)
  - Postmenopausal haemorrhage [Recovered/Resolved]
  - Blood prolactin increased [Not Recovered/Not Resolved]
